FAERS Safety Report 25395307 (Version 2)
Quarter: 2025Q2

REPORT INFORMATION
  Report Type: Spontaneous
  Country: ES (occurrence: ES)
  Receive Date: 20250604
  Receipt Date: 20250613
  Transmission Date: 20250716
  Serious: Yes (Other)
  Sender: ALEXION PHARMACEUTICALS
  Company Number: ES-AstraZeneca-CH-00883177AP

PATIENT
  Age: 60 Year

DRUGS (1)
  1. BUDESONIDE\FORMOTEROL\GLYCOPYRRONIUM [Suspect]
     Active Substance: BUDESONIDE\FORMOTEROL\GLYCOPYRRONIUM

REACTIONS (5)
  - Choking [Unknown]
  - Device delivery system issue [Unknown]
  - Device defective [Unknown]
  - Device malfunction [Unknown]
  - Incorrect dose administered by device [Unknown]
